FAERS Safety Report 25253052 (Version 3)
Quarter: 2025Q2

REPORT INFORMATION
  Report Type: Report from Study
  Country: US (occurrence: US)
  Receive Date: 20250430
  Receipt Date: 20250528
  Transmission Date: 20250717
  Serious: Yes (Hospitalization, Other)
  Sender: ALEXION PHARMACEUTICALS
  Company Number: US-AstraZeneca-CH-00856139A

PATIENT
  Age: 75 Year
  Weight: 102 kg

DRUGS (12)
  1. DAPAGLIFLOZIN [Suspect]
     Active Substance: DAPAGLIFLOZIN
     Dosage: 10 MILLIGRAM, QD
  2. ASPIRIN [Concomitant]
     Active Substance: ASPIRIN
     Dosage: 81 MILLIGRAM, QD
  3. ENTRESTO [Concomitant]
     Active Substance: SACUBITRIL\VALSARTAN
     Dosage: 1 DOSAGE FORM, BID 24-26 MG
  4. FUROSEMIDE [Concomitant]
     Active Substance: FUROSEMIDE
     Dosage: 20 MILLIGRAM, QD
  5. METOPROLOL SUCCINATE [Concomitant]
     Active Substance: METOPROLOL SUCCINATE
     Dosage: TAKE 1 TABLET (50 MG TOTAL) BY MOUTH 2 (TWO) TIMES A DAY. TAKE 100 MG BY MOUTH EVERY MORNING AND 50 MG IN THE EVENING
  6. PRAVASTATIN [Concomitant]
     Active Substance: PRAVASTATIN
     Dosage: 40 MILLIGRAM, QD
  7. ROPINIROLE [Concomitant]
     Active Substance: ROPINIROLE
     Dosage: 2 MILLIGRAM, QD AT BEDTIME
  8. SPIRONOLACTONE [Concomitant]
     Active Substance: SPIRONOLACTONE
     Dosage: 25 MILLIGRAM, QD
  9. VOLTAREN [Concomitant]
     Active Substance: DICLOFENAC SODIUM
     Route: 065
  10. CEPHALEXIN [Concomitant]
     Active Substance: CEPHALEXIN
     Dosage: 500 MILLIGRAM, BID FOR 6 DAYS
  11. LIDOCAINE [Concomitant]
     Active Substance: LIDOCAINE
     Dosage: UNK, QD 5%
     Route: 065
  12. OXYCODONE [Concomitant]
     Active Substance: OXYCODONE
     Route: 065

REACTIONS (34)
  - Renal failure [Recovered/Resolved]
  - Sepsis [Recovered/Resolved]
  - Vasculitis [Unknown]
  - Cystitis [Recovered/Resolved]
  - Escherichia infection [Recovered/Resolved]
  - Fatigue [Unknown]
  - Asthenia [Unknown]
  - Chills [Unknown]
  - Illness [Unknown]
  - Myalgia [Unknown]
  - Headache [Unknown]
  - Hyperhidrosis [Unknown]
  - Insomnia [Unknown]
  - Dizziness [Unknown]
  - Balance disorder [Unknown]
  - Pyrexia [Unknown]
  - Nausea [Unknown]
  - Decreased appetite [Unknown]
  - Pain [Unknown]
  - Gait disturbance [Unknown]
  - White blood cell disorder [Unknown]
  - Neutrophil count abnormal [Unknown]
  - Lymphocyte count abnormal [Unknown]
  - Blood sodium decreased [Unknown]
  - Blood bilirubin abnormal [Unknown]
  - Alanine aminotransferase abnormal [Unknown]
  - Aspartate aminotransferase increased [Unknown]
  - Enzyme abnormality [Unknown]
  - Pneumonia [Unknown]
  - Blood chloride abnormal [Unknown]
  - Alanine aminotransferase abnormal [Unknown]
  - Aspartate aminotransferase [Unknown]
  - Back pain [Unknown]
  - Pyelonephritis acute [Unknown]
